FAERS Safety Report 7331513-0 (Version None)
Quarter: 2011Q1

REPORT INFORMATION
  Report Type: 
  Country: None (occurrence: None)
  Receive Date: 20110224
  Receipt Date: 20110215
  Transmission Date: 20110831
  Serious: Yes (Other)
  Sender: FDA-Public Use
  Company Number: 2011SP007354

PATIENT
  Age: 33 Year
  Sex: Male
  Weight: 85 kg

DRUGS (2)
  1. ELOSALIC (MOMETASONE FUROATE/SALICYLIC ACID /02346401/) [Suspect]
     Indication: HYPERKERATOSIS
     Dosage: QD
     Dates: start: 20110115, end: 20110215
  2. ELOSALIC (MOMETASONE FUROATE/SALICYLIC ACID /02346401/) [Suspect]
     Indication: DERMATITIS
     Dosage: QD
     Dates: start: 20110115, end: 20110215

REACTIONS (1)
  - ALANINE AMINOTRANSFERASE INCREASED [None]
